FAERS Safety Report 11454451 (Version 1)
Quarter: 2015Q3

REPORT INFORMATION
  Report Type: Spontaneous
  Country: US (occurrence: US)
  Receive Date: 20150831
  Receipt Date: 20150831
  Transmission Date: 20151125
  Serious: Yes (Other)
  Sender: FDA-Public Use
  Company Number: US-ELI_LILLY_AND_COMPANY-US201003007058

PATIENT
  Age: 70 Year
  Sex: Female

DRUGS (3)
  1. CYMBALTA [Suspect]
     Active Substance: DULOXETINE HYDROCHLORIDE
     Indication: FIBROMYALGIA
     Dosage: 30 MG, DAILY (1/D)
     Dates: start: 2009
  2. CYMBALTA [Suspect]
     Active Substance: DULOXETINE HYDROCHLORIDE
     Dosage: 30 MG, OTHER
     Dates: end: 20100312
  3. IMITREX [Concomitant]
     Active Substance: SUMATRIPTAN\SUMATRIPTAN SUCCINATE
     Indication: MIGRAINE
     Dosage: 1 D/F, AS NEEDED

REACTIONS (10)
  - Drug ineffective [Unknown]
  - Restless legs syndrome [Unknown]
  - Fatigue [Unknown]
  - Feeling abnormal [Unknown]
  - Diarrhoea haemorrhagic [Recovered/Resolved]
  - Hyperhidrosis [Not Recovered/Not Resolved]
  - Polymyositis [Recovering/Resolving]
  - Muscle spasms [Not Recovered/Not Resolved]
  - Nausea [Unknown]
  - Insomnia [Unknown]

NARRATIVE: CASE EVENT DATE: 2009
